FAERS Safety Report 16039450 (Version 2)
Quarter: 2019Q1

REPORT INFORMATION
  Report Type: Spontaneous
  Country: US (occurrence: US)
  Receive Date: 20190306
  Receipt Date: 20190319
  Transmission Date: 20190418
  Serious: Yes (Hospitalization)
  Sender: FDA-Public Use
  Company Number: US-TAKEDA-2019TUS009086

PATIENT
  Sex: Male
  Weight: 70 kg

DRUGS (1)
  1. NINLARO [Suspect]
     Active Substance: IXAZOMIB CITRATE
     Indication: PLASMA CELL MYELOMA
     Dosage: 4 MILLIGRAM
     Route: 048
     Dates: start: 201803

REACTIONS (4)
  - Diarrhoea [Unknown]
  - Pneumonia [Unknown]
  - Product dose omission [Unknown]
  - Constipation [Unknown]
